FAERS Safety Report 17929624 (Version 1)
Quarter: 2020Q2

REPORT INFORMATION
  Report Type: Spontaneous
  Country: US (occurrence: US)
  Receive Date: 20200623
  Receipt Date: 20200623
  Transmission Date: 20200714
  Serious: No
  Sender: FDA-Public Use
  Company Number: US-ALLERGAN-2009544US

PATIENT
  Sex: Female

DRUGS (1)
  1. KYBELLA [Suspect]
     Active Substance: DEOXYCHOLIC ACID
     Indication: FAT TISSUE INCREASED
     Dosage: UNK, SINGLE
     Route: 058

REACTIONS (5)
  - Toothache [Recovered/Resolved]
  - Vascular occlusion [Recovered/Resolved]
  - Injection site discolouration [Recovered/Resolved]
  - Contusion [Recovered/Resolved]
  - Dental discomfort [Recovered/Resolved]

NARRATIVE: CASE EVENT DATE: 202002
